FAERS Safety Report 6234627-1 (Version None)
Quarter: 2009Q2

REPORT INFORMATION
  Report Type: 
  Country: None (occurrence: None)
  Receive Date: 20090615
  Receipt Date: 20090408
  Transmission Date: 20091009
  Serious: No
  Sender: FDA-Public Use
  Company Number: DSA_33488_2009

PATIENT
  Sex: Male

DRUGS (4)
  1. XENAZINE [Suspect]
     Indication: HUNTINGTON'S CHOREA
     Dosage: 12.5 MG QD, TAKEN AT NIGHT
     Dates: start: 20090201, end: 20090301
  2. LEXAPRO [Concomitant]
  3. SEROQUEL [Concomitant]
  4. CRESTOR [Concomitant]

REACTIONS (2)
  - AGITATION [None]
  - FATIGUE [None]
